FAERS Safety Report 9230574 (Version 1)
Quarter: 2013Q2

REPORT INFORMATION
  Report Type: Spontaneous
  Country: US (occurrence: US)
  Receive Date: 20130415
  Receipt Date: 20130415
  Transmission Date: 20140414
  Serious: Yes (Death, Other)
  Sender: FDA-Public Use
  Company Number: US-SANOFI-AVENTIS-2013SA037919

PATIENT
  Age: 72 Year
  Sex: Female

DRUGS (4)
  1. CLOPIDOGREL BISULFATE [Suspect]
     Indication: PULMONARY EMBOLISM
  2. XARELTO [Suspect]
     Indication: PULMONARY EMBOLISM
     Route: 048
  3. ACETYLSALICYLIC ACID [Suspect]
     Indication: PULMONARY EMBOLISM
  4. WARFARIN [Concomitant]

REACTIONS (2)
  - Death [Fatal]
  - Eye haemorrhage [Unknown]
